FAERS Safety Report 24723106 (Version 1)
Quarter: 2024Q4

REPORT INFORMATION
  Report Type: Spontaneous
  Country: GB (occurrence: GB)
  Receive Date: 20241211
  Receipt Date: 20241211
  Transmission Date: 20250115
  Serious: Yes (Other)
  Sender: ELI LILLY AND COMPANY
  Company Number: GB-MHRA-EMIS-1149-bacb0253-3739-41a7-bef0-34dbf5f5b408

PATIENT
  Age: 46 Year
  Sex: Female
  Weight: 91 kg

DRUGS (6)
  1. MOUNJARO [Suspect]
     Active Substance: TIRZEPATIDE
     Indication: Product used for unknown indication
     Dosage: 2.5 MG, WEEKLY (1/W)
     Route: 058
     Dates: start: 20241031, end: 20241115
  2. ATORVASTATIN [Concomitant]
     Active Substance: ATORVASTATIN
     Indication: Type 2 diabetes mellitus
     Dosage: 1 DOSAGE FORM, DAILY
     Dates: start: 20240923
  3. HYDROCORTISONE [Concomitant]
     Active Substance: HYDROCORTISONE
     Indication: Product used for unknown indication
     Dosage: 15 G, BID
     Dates: start: 20241112
  4. CALAMINE PHENOLATED TOPICAL SUSPENSION [Concomitant]
     Active Substance: PHENOL\ZINC OXIDE
     Indication: Product used for unknown indication
     Dosage: 200 ML, PRN
     Dates: start: 20241115
  5. ACYCLOVIR [Concomitant]
     Active Substance: ACYCLOVIR
     Indication: Product used for unknown indication
     Dosage: 1 DOSAGE FORM, FIVE TIMES A DAY
     Dates: start: 20241115
  6. DIHYDROCODEINE;PARACETAMOL [Concomitant]
     Indication: Product used for unknown indication
     Dosage: 1 DOSAGE FORM, ONE OR TWO EVERY FOUR TO SIX HOURS
     Dates: start: 20241115

REACTIONS (1)
  - Herpes zoster [Recovering/Resolving]

NARRATIVE: CASE EVENT DATE: 20241108
